FAERS Safety Report 8767075 (Version 1)
Quarter: 2012Q4

REPORT INFORMATION
  Report Type: 
  Country: CH (occurrence: CH)
  Receive Date: 20120904
  Receipt Date: 20120904
  Transmission Date: 20130627
  Serious: Yes (Hospitalization, Other)
  Sender: FDA-Public Use
  Company Number: CH-ELI_LILLY_AND_COMPANY-CH201208008615

PATIENT
  Age: 87 Year
  Sex: Female

DRUGS (6)
  1. CYMBALTA [Suspect]
     Dosage: 30 mg, qd
     Dates: end: 20120713
  2. SINTROM MITIS [Concomitant]
     Dosage: UNK
  3. NEXIUM [Concomitant]
     Dosage: 20 mg, qd
  4. DIOVAN [Concomitant]
     Dosage: 80 mg, qd
  5. NITRODERM [Concomitant]
     Dosage: 1 DF, qd
     Route: 061
  6. ESIDREX [Concomitant]
     Dosage: 12.5 mg, qd

REACTIONS (2)
  - Bundle branch block right [Recovered/Resolved]
  - Bundle branch block left [Recovered/Resolved]
